FAERS Safety Report 4333139-X (Version None)
Quarter: 2004Q1

REPORT INFORMATION
  Report Type: 
  Country: None (occurrence: None)
  Receive Date: 20040330
  Receipt Date: 20040315
  Transmission Date: 20041129
  Serious: Yes (Hospitalization)
  Sender: FDA-Public Use
  Company Number: 200401215

PATIENT
  Age: 53 Year
  Sex: Female

DRUGS (1)
  1. BOTOX [Suspect]
     Indication: MIGRAINE

REACTIONS (7)
  - ARTHRITIS [None]
  - MYALGIA [None]
  - PAIN IN EXTREMITY [None]
  - PYREXIA [None]
  - SERUM SICKNESS [None]
  - SWELLING [None]
  - WHITE BLOOD CELL COUNT INCREASED [None]
